FAERS Safety Report 9510587 (Version 1)
Quarter: 2013Q3

REPORT INFORMATION
  Report Type: Spontaneous
  Country: US (occurrence: US)
  Receive Date: 20130909
  Receipt Date: 20130909
  Transmission Date: 20140515
  Serious: No
  Sender: FDA-Public Use
  Company Number: US-BAYER-2013-107468

PATIENT
  Sex: Female
  Weight: 77 kg

DRUGS (2)
  1. BAYER GENUINE ASPIRIN ORIGINAL STRENGTH [Suspect]
     Indication: THROMBOTIC THROMBOCYTOPENIC PURPURA
     Dosage: 1 DF, QD
     Route: 048
     Dates: start: 1980
  2. ALEVE CAPLET [Suspect]
     Indication: EAR DISORDER
     Dosage: 1 DF, QD
     Route: 048

REACTIONS (2)
  - Off label use [None]
  - Off label use [None]
